FAERS Safety Report 15570429 (Version 1)
Quarter: 2018Q4

REPORT INFORMATION
  Report Type: Spontaneous
  Country: US (occurrence: US)
  Receive Date: 20181025
  Receipt Date: 20181025
  Transmission Date: 20190205
  Serious: No
  Sender: FDA-Public Use
  Company Number: None

PATIENT
  Age: 30 Year
  Sex: Female
  Weight: 56.7 kg

DRUGS (1)
  1. DAPTOMYCIN. [Suspect]
     Active Substance: DAPTOMYCIN
     Indication: BURSITIS INFECTIVE
     Route: 042
     Dates: start: 20181015, end: 20181020

REACTIONS (3)
  - Rash generalised [None]
  - Erythema [None]
  - Ear pruritus [None]

NARRATIVE: CASE EVENT DATE: 20181020
